FAERS Safety Report 10213867 (Version 1)
Quarter: 2014Q2

REPORT INFORMATION
  Report Type: Spontaneous
  Country: JP (occurrence: None)
  Receive Date: 20140530
  Receipt Date: 20140530
  Transmission Date: 20141212
  Serious: Yes (Other)
  Sender: FDA-Public Use
  Company Number: FK201401987

PATIENT
  Age: 40 Year
  Sex: Female

DRUGS (5)
  1. METHYLPREDNISOLONE [Suspect]
     Indication: GRAFT VERSUS HOST DISEASE
     Dates: start: 201010, end: 201106
  2. METHYLPREDNISOLONE [Suspect]
     Indication: PNEUMOCYSTIS JIROVECII PNEUMONIA
     Dates: start: 201010, end: 201106
  3. TACROLIMUS (TACROLIMUS) [Suspect]
     Indication: GRAFT VERSUS HOST DISEASE
     Dates: start: 201010, end: 201106
  4. TACROLIMUS (TACROLIMUS) [Suspect]
     Indication: PNEUMOCYSTIS JIROVECII PNEUMONIA
     Dates: start: 201010, end: 201106
  5. BETAMETHASONE [Concomitant]

REACTIONS (1)
  - Progressive multifocal leukoencephalopathy [None]
